FAERS Safety Report 10482377 (Version 2)
Quarter: 2014Q4

REPORT INFORMATION
  Report Type: Spontaneous
  Country: US (occurrence: US)
  Receive Date: 20140929
  Receipt Date: 20141107
  Transmission Date: 20150528
  Serious: Yes (Hospitalization)
  Sender: FDA-Public Use
  Company Number: US-BAYER-2014-142844

PATIENT
  Age: 23 Year
  Sex: Female
  Weight: 54.42 kg

DRUGS (7)
  1. AZITHROMYCIN [Concomitant]
     Active Substance: AZITHROMYCIN ANHYDROUS
  2. AMITRIPTYLINE [Concomitant]
     Active Substance: AMITRIPTYLINE
  3. PYRIDIUM [Concomitant]
     Active Substance: PHENAZOPYRIDINE
     Indication: URINARY TRACT INFECTION
     Dosage: UNK
     Route: 048
     Dates: start: 20121030
  4. MIRENA [Suspect]
     Active Substance: LEVONORGESTREL
     Indication: CONTRACEPTION
     Dosage: 20 MCG/24HR, CONT
     Route: 015
     Dates: start: 20121025, end: 20121226
  5. SOMA [Concomitant]
     Active Substance: CARISOPRODOL
     Dosage: 350 MG, TID, PRN
     Route: 048
     Dates: start: 20121219
  6. MACROBID [Concomitant]
     Active Substance: NITROFURANTOIN\NITROFURANTOIN MONOHYDRATE
     Indication: URINARY TRACT INFECTION
     Dosage: UNK
     Route: 048
     Dates: start: 20121030
  7. IBUPROFEN. [Concomitant]
     Active Substance: IBUPROFEN

REACTIONS (11)
  - Depressed mood [Not Recovered/Not Resolved]
  - Device dislocation [None]
  - Anxiety [Not Recovered/Not Resolved]
  - Injury [None]
  - Emotional distress [None]
  - Uterine adhesions [None]
  - Uterine perforation [None]
  - Depression [Not Recovered/Not Resolved]
  - Fallopian tube cyst [None]
  - Pain [None]
  - Infertility female [None]

NARRATIVE: CASE EVENT DATE: 20121029
